FAERS Safety Report 7588514-7 (Version None)
Quarter: 2011Q3

REPORT INFORMATION
  Report Type: 
  Country: None (occurrence: None)
  Receive Date: 20110705
  Receipt Date: 20110630
  Transmission Date: 20111222
  Serious: Yes (Other)
  Sender: FDA-Public Use
  Company Number: IL-PFIZER INC-2011134324

PATIENT
  Age: 28 Year
  Sex: Female

DRUGS (1)
  1. GEODON [Suspect]
     Indication: SCHIZOAFFECTIVE DISORDER
     Dosage: 80 MG, 2X/DAY
     Route: 048
     Dates: start: 20110501, end: 20110501

REACTIONS (2)
  - OEDEMA PERIPHERAL [None]
  - GENERALISED OEDEMA [None]
